FAERS Safety Report 24133062 (Version 1)
Quarter: 2024Q3

REPORT INFORMATION
  Report Type: Spontaneous
  Country: US (occurrence: None)
  Receive Date: 20240723
  Receipt Date: 20240723
  Transmission Date: 20241016
  Serious: No
  Sender: Public
  Company Number: None

PATIENT
  Sex: Female

DRUGS (1)
  1. TALTZ [Suspect]
     Active Substance: IXEKIZUMAB
     Indication: Psoriasis
     Dosage: 80MG EVERY 4 WEEKS UNDER THE SKIN
     Route: 058
     Dates: start: 202305

REACTIONS (3)
  - Dyspnoea [None]
  - Dysphagia [None]
  - Therapy cessation [None]
